FAERS Safety Report 4841362-0 (Version None)
Quarter: 2005Q4

REPORT INFORMATION
  Report Type: 
  Country: None (occurrence: None)
  Receive Date: 20051027
  Receipt Date: 20050210
  Transmission Date: 20060501
  Serious: Yes (Hospitalization, Other)
  Sender: FDA-Public Use
  Company Number: HQWYE274111FEB05

PATIENT
  Sex: Female

DRUGS (4)
  1. PREMARIN [Suspect]
     Dosage: ORAL
     Route: 048
  2. ESTRATAB [Suspect]
  3. ESTROGENS SOL/INJ [Suspect]
  4. PROGESTERONE [Suspect]

REACTIONS (1)
  - BREAST CANCER [None]
